FAERS Safety Report 10297356 (Version 2)
Quarter: 2014Q3

REPORT INFORMATION
  Report Type: Other
  Country: IT (occurrence: IT)
  Receive Date: 20140711
  Receipt Date: 20140919
  Transmission Date: 20150326
  Serious: Yes (Hospitalization)
  Sender: FDA-Public Use
  Company Number: IT-MYLANLABS-2014S1015812

PATIENT

DRUGS (4)
  1. PENSTAPHO [Interacting]
     Active Substance: OXACILLIN SODIUM
     Indication: PRODUCT USED FOR UNKNOWN INDICATION
     Dosage: 3 G,QD
     Route: 042
     Dates: start: 20140211, end: 20140302
  2. GLUTATHIONE SODIUM [Concomitant]
     Indication: PRODUCT USED FOR UNKNOWN INDICATION
     Dosage: 1 DF,UNK
     Route: 042
     Dates: start: 20140218, end: 20140305
  3. RIFADIN [Interacting]
     Active Substance: RIFAMPIN
     Indication: PRODUCT USED FOR UNKNOWN INDICATION
     Dosage: 500 MG,QD
     Route: 042
     Dates: start: 20140211, end: 20140217
  4. LEVOFLOXACIN [Suspect]
     Active Substance: LEVOFLOXACIN
     Indication: SYNOVITIS
     Dosage: 1 DF,QD
     Route: 042
     Dates: start: 20140211, end: 20140218

REACTIONS (4)
  - Leukopenia [Recovered/Resolved]
  - Neutropenia [Recovered/Resolved]
  - Bone marrow failure [Recovered/Resolved]
  - Drug interaction [Recovered/Resolved]

NARRATIVE: CASE EVENT DATE: 20140303
